FAERS Safety Report 8732995 (Version 3)
Quarter: 2012Q4

REPORT INFORMATION
  Report Type: Spontaneous
  Country: FR (occurrence: None)
  Receive Date: 20120802
  Receipt Date: 20120904
  Transmission Date: 20130627
  Serious: Yes (Hospitalization)
  Sender: FDA-Public Use
  Company Number: 2012000189

PATIENT
  Age: 83 Year
  Sex: Male

DRUGS (10)
  1. ACEON [Suspect]
     Indication: PRODUCT USED FOR UNKNOWN INDICATION
     Route: 048
  2. ACEON [Suspect]
     Indication: HYPERTENSION ARTERIAL
     Route: 048
  3. PROPYLTHIOURACIL [Suspect]
     Indication: HYPERTHYROIDISM
     Route: 048
     Dates: start: 20120430, end: 20120610
  4. CRESTOR [Suspect]
     Indication: PROPHYLAXIS
     Route: 048
  5. DUOPLANIN [Suspect]
     Indication: PROPHYLAXIS
     Route: 048
  6. LASILIX (FUROSEMIDE) [Concomitant]
  7. ATENOLOL ALPHARMA (ATENOLOL) [Concomitant]
  8. METFORMIN ALPHARMA (METFORMIN HYDROCHLORIDE) [Concomitant]
  9. ALDACTONE (SPIRONOLACTONE [Concomitant]
  10. DIFFU K (POTASSIUM CHLORIDE) [Concomitant]

REACTIONS (8)
  - Hepatitis [None]
  - Cholestasis [None]
  - Renal failure acute [None]
  - Renal tubular disorder [None]
  - Proteinuria [None]
  - Beta 2 microglobulin urine increased [None]
  - Anaemia [None]
  - Leukopenia [None]
